FAERS Safety Report 9850797 (Version 1)
Quarter: 2014Q1

REPORT INFORMATION
  Report Type: Spontaneous
  Country: GH (occurrence: GH)
  Receive Date: 20140128
  Receipt Date: 20140128
  Transmission Date: 20141002
  Serious: Yes (Other)
  Sender: FDA-Public Use
  Company Number: PHHY2014GH009331

PATIENT
  Age: 10 Year
  Sex: Female
  Weight: 47 kg

DRUGS (2)
  1. MEFLOQUINE [Suspect]
     Indication: MALARIA PROPHYLAXIS
     Dosage: 250 MG, QW
  2. AMODIAQUINE W/ARTESUNATE [Suspect]
     Indication: MALARIA

REACTIONS (7)
  - Blindness [Recovered/Resolved]
  - Colour blindness acquired [Recovered/Resolved]
  - Mydriasis [Recovered/Resolved]
  - Visual acuity reduced [Recovered/Resolved]
  - Vision blurred [Recovered/Resolved]
  - Conjunctival hyperaemia [Recovered/Resolved]
  - Papilloedema [Recovered/Resolved]
